FAERS Safety Report 10904387 (Version 1)
Quarter: 2015Q1

REPORT INFORMATION
  Report Type: Spontaneous
  Country: US (occurrence: None)
  Receive Date: 20150304
  Receipt Date: 20150304
  Transmission Date: 20150721
  Serious: No
  Sender: FDA-Public Use
  Company Number: None

PATIENT
  Age: 72 Year
  Sex: Female

DRUGS (6)
  1. HYDROCHLOROTHIAZIDE. [Concomitant]
     Active Substance: HYDROCHLOROTHIAZIDE
  2. AMPYRA [Suspect]
     Active Substance: DALFAMPRIDINE
     Indication: MULTIPLE SCLEROSIS
     Route: 048
     Dates: start: 201007, end: 201312
  3. LISINOPRIL. [Concomitant]
     Active Substance: LISINOPRIL
  4. OXYBUTYNIN [Concomitant]
     Active Substance: OXYBUTYNIN
  5. DIAZEPAM. [Concomitant]
     Active Substance: DIAZEPAM
  6. NITROFURANTOIN. [Concomitant]
     Active Substance: NITROFURANTOIN

REACTIONS (2)
  - Therapy cessation [None]
  - Intentional product misuse [None]

NARRATIVE: CASE EVENT DATE: 20131105
